FAERS Safety Report 5487967-8 (Version None)
Quarter: 2007Q4

REPORT INFORMATION
  Report Type: 
  Country: None (occurrence: None)
  Receive Date: 20071012
  Receipt Date: 20071012
  Transmission Date: 20080405
  Serious: Yes (Life-Threatening)
  Sender: FDA-Public Use
  Company Number: None

PATIENT
  Age: 39 Year
  Sex: Female
  Weight: 58.1 kg

DRUGS (2)
  1. METOCLOPRAMIDE HYDROCHLORIDE [Suspect]
     Indication: GASTROINTESTINAL MOTILITY DISORDER
     Dosage: 10MG Q6H IV
     Route: 042
     Dates: start: 20070929, end: 20070930
  2. METOCLOPRAMIDE HYDROCHLORIDE [Suspect]
     Indication: GASTROINTESTINAL MOTILITY DISORDER
     Dosage: 10MG Q6H IV
     Route: 042
     Dates: start: 20071006, end: 20071011

REACTIONS (2)
  - BRADYCARDIA [None]
  - CARDIAC ARREST [None]
